FAERS Safety Report 9576251 (Version 1)
Quarter: 2013Q4

REPORT INFORMATION
  Report Type: Spontaneous
  Country: US (occurrence: US)
  Receive Date: 20131001
  Receipt Date: 20131001
  Transmission Date: 20140711
  Serious: No
  Sender: FDA-Public Use
  Company Number: US-AMGEN-USASP2013001634

PATIENT
  Sex: Female
  Weight: 123.81 kg

DRUGS (9)
  1. ENBREL [Suspect]
     Indication: RHEUMATOID ARTHRITIS
     Dosage: 50 MG, QWK
     Route: 058
  2. AMLODIPINE [Concomitant]
     Dosage: 10 MG, UNK
  3. TRAMADOL [Concomitant]
     Dosage: 50 MG, UNK
  4. ATENOLOL [Concomitant]
     Dosage: 25 MG, UNK
  5. HYDROXYCHLOROQUINE [Concomitant]
     Dosage: 200 MG, UNK
  6. CELEXA                             /00582602/ [Concomitant]
     Dosage: 10 MG, UNK
  7. SULFASALAZINE [Concomitant]
     Dosage: 500 MG, UNK
  8. VYTORIN [Concomitant]
     Dosage: 10-40 MG, UNK
  9. CALCIUM + VIT D [Concomitant]
     Dosage: UNK,DAILY

REACTIONS (1)
  - Stomatitis [Unknown]
